FAERS Safety Report 6355283-8 (Version None)
Quarter: 2009Q3

REPORT INFORMATION
  Report Type: 
  Country: None (occurrence: None)
  Receive Date: 20090914
  Receipt Date: 20090901
  Transmission Date: 20100115
  Serious: Yes (Life-Threatening, Hospitalization)
  Sender: FDA-Public Use
  Company Number: GB-PFIZER INC-2009242650

PATIENT
  Age: 17 Year

DRUGS (1)
  1. SERTRALINE HCL [Suspect]
     Indication: DEPRESSION
     Dosage: 50 MG, 1X/DAY
     Route: 048
     Dates: start: 20090301

REACTIONS (7)
  - ANXIETY [None]
  - DEPRESSED MOOD [None]
  - FALL [None]
  - FATIGUE [None]
  - HYPOTENSION [None]
  - SINUS ARREST [None]
  - VIRAL INFECTION [None]
